FAERS Safety Report 4804229-X (Version None)
Quarter: 2005Q4

REPORT INFORMATION
  Report Type: 
  Country: None (occurrence: None)
  Receive Date: 20051014
  Receipt Date: 20051004
  Transmission Date: 20060501
  Serious: Yes (Hospitalization, Other)
  Sender: FDA-Public Use
  Company Number: 2005138152

PATIENT
  Age: 53 Year
  Sex: Male
  Weight: 86.1834 kg

DRUGS (7)
  1. XANAX [Suspect]
     Indication: PANIC ATTACK
     Dosage: (1 MG, 4 TO 8 TIMES DAILY), ORAL
     Route: 048
  2. CIPRO [Concomitant]
  3. FLAGYL [Concomitant]
  4. ANTIBIOTICS (ANTIBIOTICS) [Concomitant]
  5. PRILOSEC [Concomitant]
  6. NEXIUM [Concomitant]
  7. ZANTAC [Concomitant]

REACTIONS (15)
  - ABDOMINAL DISCOMFORT [None]
  - ABDOMINAL DISTENSION [None]
  - AMNESIA [None]
  - ANOREXIA [None]
  - CONSTIPATION [None]
  - DIARRHOEA [None]
  - DIVERTICULITIS [None]
  - DRUG EFFECT DECREASED [None]
  - GASTROINTESTINAL PAIN [None]
  - HYPERSENSITIVITY [None]
  - INTERVERTEBRAL DISC PROTRUSION [None]
  - NAUSEA [None]
  - SPINAL FRACTURE [None]
  - WEIGHT INCREASED [None]
  - WHITE BLOOD CELL COUNT INCREASED [None]
